FAERS Safety Report 24401475 (Version 4)
Quarter: 2024Q4

REPORT INFORMATION
  Report Type: Spontaneous
  Country: JP (occurrence: JP)
  Receive Date: 20241007
  Receipt Date: 20241226
  Transmission Date: 20250115
  Serious: Yes (Hospitalization)
  Sender: GLAXOSMITHKLINE
  Company Number: JP-GSKJP-JP2024JPN120585AA

PATIENT

DRUGS (2)
  1. DAPRODUSTAT [Suspect]
     Active Substance: DAPRODUSTAT
     Indication: Nephrogenic anaemia
     Dosage: 12 MG, QD, INCREASED
  2. REBLOZYL [Concomitant]
     Active Substance: LUSPATERCEPT-AAMT
     Dosage: UNK, Q3W
     Dates: start: 202410

REACTIONS (2)
  - Hospitalisation [Unknown]
  - Haemoglobin abnormal [Unknown]
